FAERS Safety Report 9624690 (Version 1)
Quarter: 2013Q4

REPORT INFORMATION
  Report Type: Report from Study
  Country: BR (occurrence: BR)
  Receive Date: 20131015
  Receipt Date: 20131015
  Transmission Date: 20140711
  Serious: Yes (Other)
  Sender: FDA-Public Use
  Company Number: BR-ROCHE-1288889

PATIENT
  Age: 51 Year
  Sex: Male
  Weight: 80 kg

DRUGS (7)
  1. INTERFERON ALFA-2A [Suspect]
     Indication: CHRONIC HEPATITIS C
     Route: 065
     Dates: start: 20050505
  2. RIBAVIRIN [Suspect]
     Indication: CHRONIC HEPATITIS C
     Route: 065
     Dates: start: 20050505
  3. RIBAVIRIN [Suspect]
     Route: 065
     Dates: start: 20090601
  4. RIBAVIRIN [Suspect]
     Route: 065
     Dates: start: 20121101
  5. PEG-INTERFERON ALFA 2A [Suspect]
     Indication: CHRONIC HEPATITIS C
     Route: 065
     Dates: start: 20090601
  6. PEG-INTERFERON ALFA 2A [Suspect]
     Route: 065
     Dates: start: 20121101
  7. TELAPREVIR [Concomitant]
     Indication: CHRONIC HEPATITIS C
     Route: 065

REACTIONS (2)
  - Drug ineffective [Unknown]
  - Hepatitis C [Unknown]
